FAERS Safety Report 20622814 (Version 1)
Quarter: 2022Q1

REPORT INFORMATION
  Report Type: Other
  Country: US (occurrence: None)
  Receive Date: 20220322
  Receipt Date: 20220322
  Transmission Date: 20220424
  Serious: No
  Sender: FDA-Public Use
  Company Number: US-ROCHE-3046687

PATIENT
  Age: 56 Year
  Sex: Female

DRUGS (9)
  1. OCREVUS [Suspect]
     Active Substance: OCRELIZUMAB
     Indication: Relapsing multiple sclerosis
     Dosage: LAST DATE OF TREATMENT: 27/AUG/2021, DATE OF NEXT TREATMENT: /FEB/2022
     Route: 042
     Dates: start: 202108
  2. NITROFURANTOIN [Concomitant]
     Active Substance: NITROFURANTOIN
     Indication: Urinary tract infection
  3. DALFAMPRIDINE [Concomitant]
     Active Substance: DALFAMPRIDINE
     Dates: start: 2021
  4. BACLOFEN [Concomitant]
     Active Substance: BACLOFEN
     Indication: Muscle spasms
     Dosage: TAKES ONE TABLET 3 TO 4 TIMES PER WEEK; STARTED TAKING 3 YEARS AGO
  5. ESTRADIOL [Concomitant]
     Active Substance: ESTRADIOL
     Dosage: APPLIED 2 TO 3 TIMES PER WEEK; STARTED 3 YEARS AGO
     Route: 067
  6. VITAMIN C [Concomitant]
     Active Substance: ASCORBIC ACID
  7. BIOTIN [Concomitant]
     Active Substance: BIOTIN
  8. MAGNESIUM [Concomitant]
     Active Substance: MAGNESIUM
  9. VITAMIN D3 [Concomitant]
     Active Substance: CHOLECALCIFEROL
     Dosage: 1000 IUS TO 3000 IUS

REACTIONS (2)
  - Herpes zoster [Recovered/Resolved]
  - Stress [Unknown]

NARRATIVE: CASE EVENT DATE: 20220209
